FAERS Safety Report 15390032 (Version 1)
Quarter: 2018Q3

REPORT INFORMATION
  Report Type: Spontaneous
  Country: GB (occurrence: GB)
  Receive Date: 20180917
  Receipt Date: 20180917
  Transmission Date: 20181010
  Serious: Yes (Other)
  Sender: FDA-Public Use
  Company Number: GB-TEVA-2018-GB-954809

PATIENT
  Age: 81 Year
  Sex: Male
  Weight: 71 kg

DRUGS (17)
  1. OLIVE OIL [Concomitant]
     Active Substance: OLIVE OIL
     Dosage: 9 GTT DAILY; INTO EACH EAR.
     Route: 001
     Dates: start: 20180504
  2. CAVERJECT [Concomitant]
     Active Substance: ALPROSTADIL
     Route: 065
     Dates: start: 20171018
  3. INCRUSE ELLIPTA [Concomitant]
     Active Substance: UMECLIDINIUM BROMIDE
     Indication: CHRONIC OBSTRUCTIVE PULMONARY DISEASE
     Dosage: 1 DOSAGE FORMS DAILY; PUFF
     Route: 055
     Dates: start: 20180504
  4. PREDNISOLONE. [Concomitant]
     Active Substance: PREDNISOLONE
     Dosage: 40 MILLIGRAM DAILY; FOR 7?14 DAYS
     Route: 065
     Dates: start: 20180504
  5. LEVOTHYROXINE. [Concomitant]
     Active Substance: LEVOTHYROXINE
     Indication: THYROID DISORDER
     Dosage: 1 DOSAGE FORMS DAILY;
     Route: 065
     Dates: start: 20180504
  6. AZITHROMYCIN ANHYDROUS. [Concomitant]
     Active Substance: AZITHROMYCIN ANHYDROUS
     Dosage: FOR THE CHEST AS ADVISED
     Route: 065
     Dates: start: 20180504
  7. AVAMYS [Concomitant]
     Active Substance: FLUTICASONE FUROATE
     Dosage: 1 DOSAGE FORMS DAILY;
     Dates: start: 20180808
  8. SALBUTAMOL [Concomitant]
     Active Substance: ALBUTEROL
     Dosage: PUFFS UP TO FOUR TIMES DAILY
     Route: 055
     Dates: start: 20180504
  9. CIPROFLOXACIN. [Concomitant]
     Active Substance: CIPROFLOXACIN
     Indication: LOWER RESPIRATORY TRACT INFECTION
     Dosage: 2 DOSAGE FORMS DAILY;
     Route: 065
     Dates: start: 20180504
  10. DOXYCYCLINE. [Suspect]
     Active Substance: DOXYCYCLINE
     Route: 065
     Dates: start: 20180817
  11. CARBOCISTEINE [Concomitant]
     Active Substance: CARBOCYSTEINE
     Dosage: 4 DOSAGE FORMS DAILY;
     Route: 065
     Dates: start: 20180504
  12. COLECALCIFEROL [Concomitant]
     Active Substance: CHOLECALCIFEROL
     Indication: BONE DISORDER
     Dosage: 1 DOSAGE FORMS DAILY;
     Route: 065
     Dates: start: 20180504, end: 20180614
  13. RANITIDINE. [Concomitant]
     Active Substance: RANITIDINE
     Dosage: 2 DOSAGE FORMS DAILY;
     Dates: start: 20180504
  14. CALCI?D [Concomitant]
     Dosage: 1 DOSAGE FORMS DAILY;
     Route: 065
     Dates: start: 20180614
  15. LAXIDO [Concomitant]
     Active Substance: POLYETHYLENE GLYCOL 3350\POTASSIUM CHLORIDE\SODIUM BICARBONATE\SODIUM CHLORIDE
     Dosage: CONTENTS OF A SACHET.
     Route: 065
     Dates: start: 20180504
  16. RELVAR ELLIPTA [Concomitant]
     Active Substance: FLUTICASONE FUROATE\VILANTEROL TRIFENATATE
     Indication: CHRONIC OBSTRUCTIVE PULMONARY DISEASE
     Dosage: 1 DOSAGE FORMS DAILY; PUFF
     Route: 065
     Dates: start: 20180504
  17. FLUTICASONE FUROATE [Concomitant]
     Active Substance: FLUTICASONE FUROATE
     Dosage: 2 DOSAGE FORMS DAILY; IN EACH NOSTRIL
     Route: 045
     Dates: start: 20180504

REACTIONS (2)
  - Rash [Unknown]
  - Palpitations [Recovered/Resolved]

NARRATIVE: CASE EVENT DATE: 20180817
